FAERS Safety Report 7237961-1 (Version None)
Quarter: 2011Q1

REPORT INFORMATION
  Report Type: 
  Country: None (occurrence: None)
  Receive Date: 20110121
  Receipt Date: 20110110
  Transmission Date: 20110831
  Serious: Yes (Other)
  Sender: FDA-Public Use
  Company Number: PHHY2011US03124

PATIENT
  Age: 39 Year
  Sex: Male

DRUGS (4)
  1. LEVODOPA [Suspect]
     Indication: PARKINSON'S DISEASE
     Dosage: 450 MG/DAY
  2. PRAMIPEXOLE [Suspect]
     Dosage: 1.5 MG, TID
  3. PRAMIPEXOLE [Suspect]
     Indication: PARKINSONISM
     Dosage: 0.125 MG, TID
  4. PRAMIPEXOLE [Suspect]
     Dosage: 4.5 MG/DAY

REACTIONS (4)
  - PATHOLOGICAL GAMBLING [None]
  - HYPERSEXUALITY [None]
  - JEALOUS DELUSION [None]
  - DEMENTIA [None]
